FAERS Safety Report 24656994 (Version 2)
Quarter: 2025Q2

REPORT INFORMATION
  Report Type: Spontaneous
  Country: US (occurrence: US)
  Receive Date: 20241125
  Receipt Date: 20250530
  Transmission Date: 20250716
  Serious: Yes (Other)
  Sender: NOVARTIS
  Company Number: US-SANDOZ-SDZ2024CA096267

PATIENT
  Age: 34 Year
  Sex: Male

DRUGS (4)
  1. VALSARTAN [Suspect]
     Active Substance: VALSARTAN
     Indication: Product used for unknown indication
     Route: 065
  2. MILRINONE [Suspect]
     Active Substance: MILRINONE
     Indication: Product used for unknown indication
     Route: 042
  3. ASPIRIN [Suspect]
     Active Substance: ASPIRIN
     Indication: Product used for unknown indication
     Route: 065
  4. TOPROL XL [Suspect]
     Active Substance: METOPROLOL SUCCINATE
     Indication: Product used for unknown indication
     Route: 065

REACTIONS (1)
  - Ejection fraction decreased [Not Recovered/Not Resolved]
